FAERS Safety Report 15890436 (Version 3)
Quarter: 2019Q1

REPORT INFORMATION
  Report Type: Report from Study
  Country: None (occurrence: US)
  Receive Date: 20190130
  Receipt Date: 20190219
  Transmission Date: 20190417
  Serious: Yes (Other)
  Sender: FDA-Public Use
  Company Number: US-ABBVIE-18K-163-2594483-00

PATIENT
  Age: 68 Year
  Sex: Male
  Weight: 69.92 kg

DRUGS (1)
  1. HUMIRA [Suspect]
     Active Substance: ADALIMUMAB
     Indication: COLITIS ULCERATIVE
     Route: 058

REACTIONS (6)
  - Asthenia [Unknown]
  - Cardiac operation [Recovering/Resolving]
  - Haemorrhagic anaemia [Unknown]
  - Abdominal pain upper [Unknown]
  - Injection site pain [Unknown]
  - Abdominal pain [Unknown]

NARRATIVE: CASE EVENT DATE: 201811
